FAERS Safety Report 21082713 (Version 1)
Quarter: 2022Q3

REPORT INFORMATION
  Report Type: Report from Study
  Country: RU (occurrence: RU)
  Receive Date: 20220714
  Receipt Date: 20220714
  Transmission Date: 20221026
  Serious: Yes (Death, Other)
  Sender: FDA-Public Use
  Company Number: RU-002147023-NVSC2022RU153317

PATIENT

DRUGS (9)
  1. RUXOLITINIB [Suspect]
     Active Substance: RUXOLITINIB
     Indication: Thrombocytopenia
     Dosage: 15 MG, QD
     Route: 048
  2. RUXOLITINIB [Suspect]
     Active Substance: RUXOLITINIB
     Indication: Acute myeloid leukaemia
  3. RUXOLITINIB [Suspect]
     Active Substance: RUXOLITINIB
     Indication: Hyperleukocytosis
  4. RUXOLITINIB [Suspect]
     Active Substance: RUXOLITINIB
     Indication: Acute graft versus host disease in intestine
  5. RUXOLITINIB [Suspect]
     Active Substance: RUXOLITINIB
     Indication: Allogenic stem cell transplantation
  6. MEROPENEM [Concomitant]
     Active Substance: MEROPENEM
     Indication: Product used for unknown indication
     Dosage: UNK
     Route: 065
  7. CYCLOSPORINE [Concomitant]
     Active Substance: CYCLOSPORINE
     Indication: Product used for unknown indication
     Dosage: UNK
     Route: 065
  8. PREDNISOLONE [Concomitant]
     Active Substance: PREDNISOLONE
     Indication: Product used for unknown indication
     Dosage: UNK
     Route: 065
  9. THYMOGLOBULIN [Concomitant]
     Active Substance: LAPINE T-LYMPHOCYTE IMMUNE GLOBULIN
     Indication: Product used for unknown indication
     Route: 065

REACTIONS (5)
  - Central nervous system fungal infection [Fatal]
  - Pneumonia fungal [Fatal]
  - Intestinal haemorrhage [Fatal]
  - Product use in unapproved indication [Unknown]
  - Inappropriate schedule of product administration [Unknown]

NARRATIVE: CASE EVENT DATE: 20220516
